FAERS Safety Report 6020361-X (Version None)
Quarter: 2008Q4

REPORT INFORMATION
  Report Type: 
  Country: None (occurrence: None)
  Receive Date: 20081223
  Receipt Date: 20081223
  Transmission Date: 20090506
  Serious: No
  Sender: FDA-Public Use
  Company Number: None

PATIENT
  Age: 26 Year
  Sex: Male

DRUGS (1)
  1. TRAZODONE HCL [Suspect]
     Indication: SOMNOLENCE
     Dosage: 50 MG AT BEDTIME PO
     Route: 048
     Dates: start: 20081126, end: 20081201

REACTIONS (3)
  - PRURITUS [None]
  - RASH [None]
  - URTICARIA [None]
